FAERS Safety Report 24589915 (Version 1)
Quarter: 2024Q4

REPORT INFORMATION
  Report Type: Spontaneous
  Country: US (occurrence: None)
  Receive Date: 20241030
  Receipt Date: 20241030
  Transmission Date: 20250114
  Serious: Yes (Other)
  Sender: Public
  Company Number: None

PATIENT
  Age: 61 Year
  Sex: Female
  Weight: 93.15 kg

DRUGS (1)
  1. PROGESTO-LIFE [Suspect]
     Active Substance: PROGESTERONE
     Indication: Menopausal symptoms
     Dosage: OTHER QUANTITY : 0.25 TEASPOON(S);?FREQUENCY : TWICE A DAY;?
     Route: 061
     Dates: start: 20240801, end: 20241003

REACTIONS (3)
  - Hypersensitivity [None]
  - Product advertising issue [None]
  - Product use complaint [None]

NARRATIVE: CASE EVENT DATE: 20240901
